FAERS Safety Report 10804929 (Version 1)
Quarter: 2015Q1

REPORT INFORMATION
  Report Type: Report from Study
  Country: US (occurrence: US)
  Receive Date: 20150217
  Receipt Date: 20150217
  Transmission Date: 20150721
  Serious: No
  Sender: FDA-Public Use
  Company Number: US-ABBVIE-14K-163-1238328-00

PATIENT
  Age: 65 Year
  Sex: Female

DRUGS (4)
  1. TRAZODONE [Concomitant]
     Active Substance: TRAZODONE HYDROCHLORIDE
     Indication: INSOMNIA
     Dosage: AT BEDTIME
  2. HUMIRA [Suspect]
     Active Substance: ADALIMUMAB
     Dates: start: 201404
  3. HUMIRA [Suspect]
     Active Substance: ADALIMUMAB
     Indication: RHEUMATOID ARTHRITIS
     Dates: start: 2003, end: 201211
  4. GABAPENTIN. [Concomitant]
     Active Substance: GABAPENTIN
     Indication: PAIN

REACTIONS (5)
  - Meniere^s disease [Not Recovered/Not Resolved]
  - Dizziness [Recovered/Resolved]
  - Dizziness [Not Recovered/Not Resolved]
  - Meniere^s disease [Recovering/Resolving]
  - Dizziness [Unknown]

NARRATIVE: CASE EVENT DATE: 2003
